FAERS Safety Report 13998143 (Version 1)
Quarter: 2017Q3

REPORT INFORMATION
  Report Type: Report from Study
  Country: US (occurrence: US)
  Receive Date: 20170921
  Receipt Date: 20170921
  Transmission Date: 20171128
  Serious: Yes (Hospitalization)
  Sender: FDA-Public Use
  Company Number: US-ACTELION-A-US2017-159858

PATIENT
  Age: 79 Year
  Sex: Female

DRUGS (12)
  1. TRACLEER [Concomitant]
     Active Substance: BOSENTAN
     Indication: PULMONARY ARTERIAL HYPERTENSION
     Route: 048
  2. METOPROLOL. [Concomitant]
     Active Substance: METOPROLOL
  3. ADEMPAS [Concomitant]
     Active Substance: RIOCIGUAT
  4. DIOVAN [Concomitant]
     Active Substance: VALSARTAN
  5. METRONIDAZOLE. [Concomitant]
     Active Substance: METRONIDAZOLE
  6. COLCHICINE. [Concomitant]
     Active Substance: COLCHICINE
  7. FLOVENT HFA [Concomitant]
     Active Substance: FLUTICASONE PROPIONATE
  8. AMLODIPINE [Concomitant]
     Active Substance: AMLODIPINE BESYLATE
  9. VENTAVIS [Suspect]
     Active Substance: ILOPROST
     Indication: PULMONARY ARTERIAL HYPERTENSION
     Dosage: UNK MCG, 6 BREATHS/DAY
     Route: 055
     Dates: start: 20140411
  10. LASIX [Concomitant]
     Active Substance: FUROSEMIDE
  11. NORVASC [Concomitant]
     Active Substance: AMLODIPINE BESYLATE
  12. CRESTOR [Concomitant]
     Active Substance: ROSUVASTATIN CALCIUM

REACTIONS (2)
  - Hernia [Unknown]
  - Cholelithiasis [Recovering/Resolving]
